FAERS Safety Report 10188762 (Version 1)
Quarter: 2014Q2

REPORT INFORMATION
  Report Type: Spontaneous
  Country: US (occurrence: None)
  Receive Date: 20140521
  Receipt Date: 20140521
  Transmission Date: 20141212
  Serious: Yes (Other)
  Sender: FDA-Public Use
  Company Number: None

PATIENT
  Age: 77 Year
  Sex: Male
  Weight: 72.58 kg

DRUGS (1)
  1. MULTAQ [Suspect]
     Indication: ARRHYTHMIA
     Route: 048

REACTIONS (6)
  - Rash erythematous [None]
  - Erythema [None]
  - Skin exfoliation [None]
  - Skin discolouration [None]
  - Skin atrophy [None]
  - Skin disorder [None]
